FAERS Safety Report 20172865 (Version 1)
Quarter: 2021Q4

REPORT INFORMATION
  Report Type: Spontaneous
  Country: FR (occurrence: FR)
  Receive Date: 20211211
  Receipt Date: 20211211
  Transmission Date: 20220303
  Serious: Yes (Hospitalization)
  Sender: FDA-Public Use
  Company Number: None

PATIENT
  Age: 77 Year
  Sex: Male

DRUGS (3)
  1. CLOPIDOGREL [Interacting]
     Active Substance: CLOPIDOGREL BISULFATE
     Indication: Coronary artery thrombosis
     Dosage: 75 MG , CLOPIDOGREL (BESILATE DE)
     Route: 048
     Dates: start: 2018, end: 20210619
  2. ASPIRIN [Interacting]
     Active Substance: ASPIRIN
     Indication: Coronary artery thrombosis
     Dosage: 100 MG
     Route: 048
     Dates: start: 2018, end: 20210619
  3. FLUINDIONE [Interacting]
     Active Substance: FLUINDIONE
     Indication: Coronary artery thrombosis
     Dosage: 20 MG
     Route: 048
     Dates: start: 2018, end: 20210619

REACTIONS (2)
  - Cerebral haematoma [Recovered/Resolved]
  - Drug interaction [Unknown]

NARRATIVE: CASE EVENT DATE: 20210619
